FAERS Safety Report 24123241 (Version 1)
Quarter: 2024Q3

REPORT INFORMATION
  Report Type: Spontaneous
  Country: CA (occurrence: CA)
  Receive Date: 20240723
  Receipt Date: 20240723
  Transmission Date: 20241016
  Serious: Yes (Life-Threatening, Disabling, Other)
  Sender: BRISTOL MYERS SQUIBB
  Company Number: CA-BRISTOL-MYERS SQUIBB COMPANY-2024-113540

PATIENT
  Sex: Female

DRUGS (130)
  1. ORENCIA [Suspect]
     Active Substance: ABATACEPT
     Indication: Rheumatoid arthritis
     Route: 042
  2. ORENCIA [Suspect]
     Active Substance: ABATACEPT
     Indication: Rheumatoid arthritis
     Route: 058
  3. ORENCIA [Suspect]
     Active Substance: ABATACEPT
     Route: 058
  4. ACETAMINOPHEN [Concomitant]
     Active Substance: ACETAMINOPHEN
     Indication: Product used for unknown indication
     Dosage: TABLET (EXTENDED- RELEASE)
  5. ACTEMRA [Concomitant]
     Active Substance: TOCILIZUMAB
     Indication: Rheumatoid arthritis
     Route: 061
  6. ACTEMRA [Concomitant]
     Active Substance: TOCILIZUMAB
  7. ACTEMRA [Concomitant]
     Active Substance: TOCILIZUMAB
     Route: 058
  8. ADALIMUMAB [Concomitant]
     Active Substance: ADALIMUMAB\ISOPROPYL ALCOHOL
     Indication: Rheumatoid arthritis
     Dosage: SOLUTION SUBCUTANEOUS
     Route: 058
  9. ADALIMUMAB [Concomitant]
     Active Substance: ADALIMUMAB\ISOPROPYL ALCOHOL
     Route: 058
  10. ADALIMUMAB [Concomitant]
     Active Substance: ADALIMUMAB\ISOPROPYL ALCOHOL
  11. ALENDRONATE SODIUM [Concomitant]
     Active Substance: ALENDRONATE SODIUM
     Indication: Rheumatoid arthritis
  12. ALENDRONATE SODIUM [Concomitant]
     Active Substance: ALENDRONATE SODIUM
     Route: 048
  13. ALENDRONIC ACID [Concomitant]
     Active Substance: ALENDRONIC ACID
     Indication: Product used for unknown indication
     Route: 048
  14. PANTOPRAZOLE SODIUM ANHYDROUS [Concomitant]
     Active Substance: PANTOPRAZOLE SODIUM ANHYDROUS
     Indication: Product used for unknown indication
  15. PREDNISONE [Concomitant]
     Active Substance: PREDNISONE
     Indication: Rheumatoid arthritis
  16. PREDNISONE [Concomitant]
     Active Substance: PREDNISONE
  17. PREDNISONE [Concomitant]
     Active Substance: PREDNISONE
  18. PREDNISONE [Concomitant]
     Active Substance: PREDNISONE
     Route: 048
  19. ARAVA [Concomitant]
     Active Substance: LEFLUNOMIDE
     Indication: Rheumatoid arthritis
     Route: 005
  20. ARAVA [Concomitant]
     Active Substance: LEFLUNOMIDE
     Route: 048
  21. ATIVAN [Concomitant]
     Active Substance: LORAZEPAM
     Indication: Product used for unknown indication
  22. CAFFEINE [Concomitant]
     Active Substance: CAFFEINE
     Indication: Product used for unknown indication
  23. CAFFEINE CITRATE [Concomitant]
     Active Substance: CAFFEINE CITRATE
     Indication: Product used for unknown indication
  24. CALCIUM [Concomitant]
     Active Substance: CALCIUM
     Indication: Product used for unknown indication
  25. CALCIUM CARBONATE [Concomitant]
     Active Substance: CALCIUM CARBONATE
     Indication: Product used for unknown indication
  26. CALCIUM CHLORIDE [Concomitant]
     Active Substance: CALCIUM CHLORIDE
     Indication: Product used for unknown indication
  27. CALCIUM GLUBIONATE [Concomitant]
     Active Substance: CALCIUM GLUBIONATE
     Indication: Product used for unknown indication
  28. CELEBREX [Concomitant]
     Active Substance: CELECOXIB
     Indication: Rheumatoid arthritis
  29. CELEBREX [Concomitant]
     Active Substance: CELECOXIB
  30. CETIRIZINE [Concomitant]
     Active Substance: CETIRIZINE HYDROCHLORIDE
     Indication: Rheumatoid arthritis
  31. CETIRIZINE HYDROCHLORIDE [Concomitant]
     Active Substance: CETIRIZINE HYDROCHLORIDE
     Indication: Rheumatoid arthritis
     Route: 049
  32. CETIRIZINE HYDROCHLORIDE [Concomitant]
     Active Substance: CETIRIZINE HYDROCHLORIDE
  33. CETIRIZINE HYDROCHLORIDE [Concomitant]
     Active Substance: CETIRIZINE HYDROCHLORIDE
  34. CHLORHEXIDINE [Concomitant]
     Active Substance: CHLORHEXIDINE
     Indication: Product used for unknown indication
     Route: 048
  35. CHOLECALCIFEROL [Concomitant]
     Active Substance: CHOLECALCIFEROL
     Indication: Product used for unknown indication
  36. CIMZIA [Concomitant]
     Active Substance: CERTOLIZUMAB PEGOL
     Indication: Rheumatoid arthritis
     Route: 058
  37. CIMZIA [Concomitant]
     Active Substance: CERTOLIZUMAB PEGOL
     Indication: Psoriasis
     Route: 058
  38. CIMZIA [Concomitant]
     Active Substance: CERTOLIZUMAB PEGOL
     Route: 005
  39. CLIOQUINOL [Concomitant]
     Active Substance: CLIOQUINOL
     Indication: Rheumatoid arthritis
     Route: 058
  40. CORTISONE ACETATE [Concomitant]
     Active Substance: CORTISONE ACETATE
     Indication: Rheumatoid arthritis
     Route: 061
  41. COSENTYX [Concomitant]
     Active Substance: SECUKINUMAB
     Indication: Psoriatic arthropathy
     Route: 042
  42. CYANOCOBALAMIN [Concomitant]
     Active Substance: CYANOCOBALAMIN
     Indication: Product used for unknown indication
  43. DESOXIMETASONE [Concomitant]
     Active Substance: DESOXIMETASONE
     Indication: Rheumatoid arthritis
     Route: 058
  44. DESOXIMETASONE [Concomitant]
     Active Substance: DESOXIMETASONE
  45. DESOXIMETASONE [Concomitant]
     Active Substance: DESOXIMETASONE
     Route: 048
  46. DICLOFENAC [Concomitant]
     Active Substance: DICLOFENAC
     Indication: Product used for unknown indication
  47. DICLOFENAC DIETHYLAMINE [Concomitant]
     Active Substance: DICLOFENAC DIETHYLAMINE
     Indication: Rheumatoid arthritis
  48. DICLOFENAC DIETHYLAMINE [Concomitant]
     Active Substance: DICLOFENAC DIETHYLAMINE
  49. DICLOFENAC POTASSIUM [Concomitant]
     Active Substance: DICLOFENAC POTASSIUM
     Indication: Product used for unknown indication
  50. DICLOFENAC SODIUM [Concomitant]
     Active Substance: DICLOFENAC\DICLOFENAC SODIUM
     Indication: Product used for unknown indication
  51. DOCOSAHEXAENOIC ACID ETHYL ESTER [Concomitant]
     Indication: Product used for unknown indication
  52. ERELZI [Concomitant]
     Active Substance: ETANERCEPT-SZZS
     Indication: Rheumatoid arthritis
     Route: 058
  53. ERELZI [Concomitant]
     Active Substance: ETANERCEPT-SZZS
     Route: 048
  54. ERGOCALCIFEROL [Concomitant]
     Active Substance: ERGOCALCIFEROL
     Indication: Product used for unknown indication
  55. ETANERCEPT [Concomitant]
     Active Substance: ETANERCEPT
     Indication: Rheumatoid arthritis
     Route: 058
  56. ETANERCEPT [Concomitant]
     Active Substance: ETANERCEPT
     Route: 058
  57. FLUMETHASONE [Concomitant]
     Active Substance: FLUMETHASONE
     Indication: Rheumatoid arthritis
     Route: 058
  58. FOLIC ACID [Concomitant]
     Active Substance: FOLIC ACID
     Indication: Rheumatoid arthritis
     Route: 058
  59. FOLIC ACID [Concomitant]
     Active Substance: FOLIC ACID
     Route: 058
  60. FOLIC ACID [Concomitant]
     Active Substance: FOLIC ACID
  61. FOLIC ACID [Concomitant]
     Active Substance: FOLIC ACID
     Route: 048
  62. FOLIC ACID [Concomitant]
     Active Substance: FOLIC ACID
  63. FOSAMAX [Concomitant]
     Active Substance: ALENDRONATE SODIUM
     Indication: Rheumatoid arthritis
     Route: 016
  64. FOSAMAX [Concomitant]
     Active Substance: ALENDRONATE SODIUM
     Route: 048
  65. GLUCOSAMINE [Concomitant]
     Active Substance: GLUCOSAMINE
     Indication: Product used for unknown indication
  66. HUMIRA [Concomitant]
     Active Substance: ADALIMUMAB
     Indication: Rheumatoid arthritis
     Route: 058
  67. HUMIRA [Concomitant]
     Active Substance: ADALIMUMAB
     Dosage: SOLUTION SUBCUTANEOUS
     Route: 058
  68. HYDROCORTISONE [Concomitant]
     Active Substance: HYDROCORTISONE\HYDROCORTISONE ACETATE
     Indication: Rheumatoid arthritis
     Route: 061
  69. HYDROCORTISONE [Concomitant]
     Active Substance: HYDROCORTISONE\HYDROCORTISONE ACETATE
     Route: 058
  70. HYDROXYCHLOROQUINE [Concomitant]
     Active Substance: HYDROXYCHLOROQUINE
     Indication: Rheumatoid arthritis
     Route: 048
  71. HYDROXYCHLOROQUINE [Concomitant]
     Active Substance: HYDROXYCHLOROQUINE
     Route: 048
  72. HYDROXYCHLOROQUINE SULFATE [Concomitant]
     Active Substance: HYDROXYCHLOROQUINE SULFATE
     Indication: Rheumatoid arthritis
  73. HYDROXYCHLOROQUINE SULFATE [Concomitant]
     Active Substance: HYDROXYCHLOROQUINE SULFATE
     Route: 048
  74. HYDROXYCHLOROQUINE SULFATE [Concomitant]
     Active Substance: HYDROXYCHLOROQUINE SULFATE
     Route: 005
  75. IBUPROFEN [Concomitant]
     Active Substance: IBUPROFEN
     Indication: Product used for unknown indication
  76. ISOPROPYL ALCOHOL [Concomitant]
     Active Substance: ISOPROPYL ALCOHOL
     Indication: Rheumatoid arthritis
     Dosage: LIQUID TOPICAL
     Route: 061
  77. KEVZARA [Concomitant]
     Active Substance: SARILUMAB
     Indication: Rheumatoid arthritis
  78. LEFLUNOMIDE [Concomitant]
     Active Substance: LEFLUNOMIDE
     Indication: Rheumatoid arthritis
  79. LISINOPRIL [Concomitant]
     Active Substance: LISINOPRIL
     Indication: Product used for unknown indication
  80. LORAZEPAM [Concomitant]
     Active Substance: LORAZEPAM
     Indication: Product used for unknown indication
  81. MAGNESIUM [Concomitant]
     Active Substance: MAGNESIUM
     Indication: Product used for unknown indication
  82. METHOTREXATE [Concomitant]
     Active Substance: METHOTREXATE
     Indication: Rheumatoid arthritis
     Route: 058
  83. METHOTREXATE [Concomitant]
     Active Substance: METHOTREXATE
     Route: 048
  84. METHOTREXATE [Concomitant]
     Active Substance: METHOTREXATE
  85. METHOTREXATE [Concomitant]
     Active Substance: METHOTREXATE
     Route: 013
  86. METHOTREXATE [Concomitant]
     Active Substance: METHOTREXATE
     Route: 013
  87. METHOTREXATE [Concomitant]
     Active Substance: METHOTREXATE
     Route: 013
  88. METHOTREXATE [Concomitant]
     Active Substance: METHOTREXATE
     Route: 048
  89. METHOTREXATE [Concomitant]
     Active Substance: METHOTREXATE
     Route: 016
  90. NAPROXEN [Concomitant]
     Active Substance: NAPROXEN
     Indication: Rheumatoid arthritis
  91. NAPROXEN [Concomitant]
     Active Substance: NAPROXEN
  92. NAPROXEN SODIUM [Concomitant]
     Active Substance: NAPROXEN\NAPROXEN SODIUM
     Indication: Rheumatoid arthritis
  93. OXYCODONE HYDROCHLORIDE [Concomitant]
     Active Substance: OXYCODONE HYDROCHLORIDE
     Indication: Product used for unknown indication
  94. OXYCODONE TEREPHTHALATE [Concomitant]
     Active Substance: OXYCODONE TEREPHTHALATE
     Indication: Product used for unknown indication
  95. PANTOPRAZOLE [Concomitant]
     Active Substance: PANTOPRAZOLE
     Indication: Product used for unknown indication
  96. PHENYLEPHRINE HYDROCHLORIDE [Concomitant]
     Active Substance: PHENYLEPHRINE HYDROCHLORIDE
     Indication: Rheumatoid arthritis
  97. PHTHALYLSULFATHIAZOLE [Concomitant]
     Active Substance: PHTHALYLSULFATHIAZOLE
     Indication: Rheumatoid arthritis
     Route: 042
  98. PHTHALYLSULFATHIAZOLE [Concomitant]
     Active Substance: PHTHALYLSULFATHIAZOLE
     Route: 048
  99. PHTHALYLSULFATHIAZOLE [Concomitant]
     Active Substance: PHTHALYLSULFATHIAZOLE
     Route: 067
  100. PHTHALYLSULFATHIAZOLE [Concomitant]
     Active Substance: PHTHALYLSULFATHIAZOLE
     Route: 058
  101. PHTHALYLSULFATHIAZOLE [Concomitant]
     Active Substance: PHTHALYLSULFATHIAZOLE
     Route: 016
  102. PREDNISONE [Concomitant]
     Active Substance: PREDNISONE
     Indication: Rheumatoid arthritis
     Route: 042
  103. PSEUDOEPHEDRINE HYDROCHLORIDE AND TRIPROLIDINE HYDROCHLORIDE [Concomitant]
     Active Substance: PSEUDOEPHEDRINE HYDROCHLORIDE\TRIPROLIDINE HYDROCHLORIDE
     Indication: Rheumatoid arthritis
  104. PSEUDOEPHEDRINE HYDROCHLORIDE AND TRIPROLIDINE HYDROCHLORIDE [Concomitant]
     Active Substance: PSEUDOEPHEDRINE HYDROCHLORIDE\TRIPROLIDINE HYDROCHLORIDE
  105. QUETIAPINE [Concomitant]
     Active Substance: QUETIAPINE
     Indication: Product used for unknown indication
  106. RAMIPRIL [Concomitant]
     Active Substance: RAMIPRIL
     Indication: Product used for unknown indication
  107. CETIRIZINE HYDROCHLORIDE\PSEUDOEPHEDRINE HYDROCHLORIDE [Concomitant]
     Active Substance: CETIRIZINE HYDROCHLORIDE\PSEUDOEPHEDRINE HYDROCHLORIDE
     Indication: Rheumatoid arthritis
  108. CETIRIZINE HYDROCHLORIDE\PSEUDOEPHEDRINE HYDROCHLORIDE [Concomitant]
     Active Substance: CETIRIZINE HYDROCHLORIDE\PSEUDOEPHEDRINE HYDROCHLORIDE
     Dosage: TABLET (EXTENDED- RELEASE)
  109. REMICADE [Concomitant]
     Active Substance: INFLIXIMAB
     Indication: Rheumatoid arthritis
     Dosage: POWDER FOR SOLUTION INTRAVENOUS
     Route: 048
  110. RISEDRONATE SODIUM [Concomitant]
     Active Substance: RISEDRONATE SODIUM
     Indication: Product used for unknown indication
  111. RITUXIMAB [Concomitant]
     Active Substance: RITUXIMAB
     Indication: Rheumatoid arthritis
     Route: 042
  112. SULFASALAZINE [Concomitant]
     Active Substance: SULFASALAZINE
     Indication: Product used for unknown indication
  113. FISH OIL [Concomitant]
     Active Substance: FISH OIL
     Indication: Product used for unknown indication
  114. SIMPONI [Concomitant]
     Active Substance: GOLIMUMAB
     Indication: Rheumatoid arthritis
     Dosage: SOLUTION SUBCUTANEOUS
  115. SIMPONI [Concomitant]
     Active Substance: GOLIMUMAB
     Route: 042
  116. SIMPONI [Concomitant]
     Active Substance: GOLIMUMAB
     Route: 058
  117. STELARA [Concomitant]
     Active Substance: USTEKINUMAB
     Indication: Product used for unknown indication
     Dosage: SOLUTION SUBCUTANEOUS
     Route: 058
  118. SULFASALAZINE [Concomitant]
     Active Substance: SULFASALAZINE
     Indication: Rheumatoid arthritis
     Route: 048
  119. SULFASALAZINE [Concomitant]
     Active Substance: SULFASALAZINE
     Route: 058
  120. SULFASALAZINE [Concomitant]
     Active Substance: SULFASALAZINE
  121. SULFASALAZINE [Concomitant]
     Active Substance: SULFASALAZINE
  122. SULFASALAZINE [Concomitant]
     Active Substance: SULFASALAZINE
     Route: 048
  123. SULFASALAZINE [Concomitant]
     Active Substance: SULFASALAZINE
     Route: 058
  124. TOFACITINIB [Concomitant]
     Active Substance: TOFACITINIB
     Indication: Rheumatoid arthritis
  125. TOFACITINIB [Concomitant]
     Active Substance: TOFACITINIB
  126. TRIPROLIDINE HYDROCHLORIDE [Concomitant]
     Active Substance: TRIPROLIDINE HYDROCHLORIDE
     Indication: Product used for unknown indication
  127. VITAMIN C [Concomitant]
     Active Substance: ASCORBIC ACID
     Indication: Product used for unknown indication
  128. XELJANZ [Concomitant]
     Active Substance: TOFACITINIB CITRATE
     Indication: Rheumatoid arthritis
  129. XELJANZ [Concomitant]
     Active Substance: TOFACITINIB CITRATE
     Route: 048
  130. ZEPATIER [Concomitant]
     Active Substance: ELBASVIR\GRAZOPREVIR
     Indication: Product used for unknown indication

REACTIONS (26)
  - Dyspepsia [Not Recovered/Not Resolved]
  - Gait disturbance [Not Recovered/Not Resolved]
  - Injury [Not Recovered/Not Resolved]
  - Insomnia [Not Recovered/Not Resolved]
  - Joint swelling [Not Recovered/Not Resolved]
  - Liver injury [Not Recovered/Not Resolved]
  - Migraine [Not Recovered/Not Resolved]
  - Mobility decreased [Not Recovered/Not Resolved]
  - Nausea [Not Recovered/Not Resolved]
  - Oedema [Not Recovered/Not Resolved]
  - Pain in extremity [Not Recovered/Not Resolved]
  - Pemphigus [Not Recovered/Not Resolved]
  - Pericarditis [Not Recovered/Not Resolved]
  - Pneumonia [Not Recovered/Not Resolved]
  - Psoriatic arthropathy [Not Recovered/Not Resolved]
  - Pulmonary fibrosis [Not Recovered/Not Resolved]
  - Pyrexia [Not Recovered/Not Resolved]
  - Sinusitis [Not Recovered/Not Resolved]
  - Sleep disorder [Not Recovered/Not Resolved]
  - Stomatitis [Not Recovered/Not Resolved]
  - Type 2 diabetes mellitus [Not Recovered/Not Resolved]
  - Ulcer haemorrhage [Not Recovered/Not Resolved]
  - Urticaria [Not Recovered/Not Resolved]
  - Weight increased [Not Recovered/Not Resolved]
  - Adverse event [Unknown]
  - Prescribed overdose [Unknown]
